FAERS Safety Report 6520359-9 (Version None)
Quarter: 2009Q4

REPORT INFORMATION
  Report Type: 
  Country: None (occurrence: None)
  Receive Date: 20091229
  Receipt Date: 20091218
  Transmission Date: 20100525
  Serious: Yes (Other)
  Sender: FDA-Public Use
  Company Number: US-PFIZER INC-2009313628

PATIENT
  Sex: Female
  Weight: 58.957 kg

DRUGS (1)
  1. LIPITOR [Suspect]
     Indication: BLOOD CHOLESTEROL INCREASED
     Dosage: 10 MG, 1X/DAY
     Route: 048
     Dates: start: 20040101, end: 20091201

REACTIONS (4)
  - MACULAR DEGENERATION [None]
  - NERVOUS SYSTEM DISORDER [None]
  - PRODUCT TAMPERING [None]
  - SKIN BURNING SENSATION [None]
